FAERS Safety Report 17562354 (Version 1)
Quarter: 2020Q1

REPORT INFORMATION
  Report Type: Spontaneous
  Country: US (occurrence: US)
  Receive Date: 20200319
  Receipt Date: 20200319
  Transmission Date: 20200409
  Serious: No
  Sender: FDA-Public Use
  Company Number: US-KALA PHARAMACEUTICALS-2020KLA00014

PATIENT
  Sex: Female

DRUGS (1)
  1. INVELTYS [Suspect]
     Active Substance: LOTEPREDNOL ETABONATE

REACTIONS (2)
  - Ocular hyperaemia [Unknown]
  - Rash [Unknown]
